FAERS Safety Report 9649886 (Version 2)
Quarter: 2020Q4

REPORT INFORMATION
  Report Type: Spontaneous
  Country: US (occurrence: US)
  Receive Date: 20131028
  Receipt Date: 20201116
  Transmission Date: 20210114
  Serious: Yes (Other)
  Sender: FDA-Public Use
  Company Number: US-NAPPMUNDI-USA-2013-0100953

PATIENT
  Age: 24 Year
  Sex: Male

DRUGS (2)
  1. OXYCODONE HYDROCHLORIDE (SIMILAR TO NDA 20-553) [Suspect]
     Active Substance: OXYCODONE HYDROCHLORIDE
     Indication: PAIN
     Route: 048
  2. HYDROMORPHONE TABLET (RHODES) [Suspect]
     Active Substance: HYDROMORPHONE
     Indication: SURGERY
     Route: 048

REACTIONS (6)
  - Learning disability [Unknown]
  - Depression [Unknown]
  - Drug abuse [Recovering/Resolving]
  - Suicidal behaviour [Unknown]
  - Overdose [Unknown]
  - Drug dependence [Recovering/Resolving]
